FAERS Safety Report 5190291-4 (Version None)
Quarter: 2006Q4

REPORT INFORMATION
  Report Type: 
  Country: None (occurrence: None)
  Receive Date: 20061222
  Receipt Date: 20061213
  Transmission Date: 20070319
  Serious: Yes (Other)
  Sender: FDA-Public Use
  Company Number: PHBS2006FI19429

PATIENT

DRUGS (1)
  1. ZOMETA [Suspect]

REACTIONS (2)
  - OSTEONECROSIS [None]
  - SOFT TISSUE NECROSIS [None]
